FAERS Safety Report 5865906-5 (Version None)
Quarter: 2008Q3

REPORT INFORMATION
  Report Type: 
  Country: None (occurrence: None)
  Receive Date: 20080829
  Receipt Date: 20080821
  Transmission Date: 20090109
  Serious: Yes (Hospitalization)
  Sender: FDA-Public Use
  Company Number: AR-AMGEN-US304616

PATIENT
  Sex: Female
  Weight: 60 kg

DRUGS (4)
  1. ENBREL [Suspect]
     Indication: RHEUMATOID ARTHRITIS
     Dosage: 50 MG (ONE DOSE ONLY)
     Route: 058
     Dates: start: 20080821, end: 20080821
  2. BETAMETHASONE DIPROPIONATE [Concomitant]
     Indication: STEROID THERAPY
     Dosage: 10 MG BETAMETHASONE DIPROPIONATE/4 MG BETAMETASONE DISODIC FOSFATE ON 2 ACUTE PAIN EVENTS
     Route: 065
  3. ARAVA [Concomitant]
     Indication: RHEUMATOID ARTHRITIS
     Route: 065
  4. CELESTONE TAB [Concomitant]
     Indication: STEROID THERAPY
     Route: 065

REACTIONS (4)
  - HEADACHE [None]
  - LOSS OF CONSCIOUSNESS [None]
  - NAUSEA [None]
  - VOMITING [None]
